FAERS Safety Report 8615860-8 (Version None)
Quarter: 2012Q3

REPORT INFORMATION
  Report Type: 
  Country: None (occurrence: None)
  Receive Date: 20120823
  Receipt Date: 20120817
  Transmission Date: 20120928
  Serious: Yes (Death, Life-Threatening, Hospitalization)
  Sender: FDA-Public Use
  Company Number: LB-ROCHE-1103083

PATIENT
  Sex: Male
  Weight: 74.5 kg

DRUGS (4)
  1. AVASTIN [Suspect]
     Indication: COLON CANCER
     Route: 041
     Dates: start: 20111017, end: 20120416
  2. FLUOROURACIL [Concomitant]
     Indication: COLON CANCER METASTATIC
     Route: 041
     Dates: start: 20111017, end: 20120416
  3. OXALIPLATIN [Concomitant]
     Indication: COLON CANCER
     Route: 041
     Dates: start: 20111017, end: 20120416
  4. BISOPROLOL FUMARATE [Concomitant]
     Indication: HYPERTENSION
     Route: 048

REACTIONS (7)
  - ABSCESS NECK [None]
  - PHARYNGEAL ULCERATION [None]
  - RENAL FAILURE ACUTE [None]
  - PHARYNGEAL FISTULA [None]
  - VASCULAR PSEUDOANEURYSM [None]
  - SEPTIC SHOCK [None]
  - DISSEMINATED INTRAVASCULAR COAGULATION [None]
